FAERS Safety Report 4964549-5 (Version None)
Quarter: 2006Q2

REPORT INFORMATION
  Report Type: 
  Country: None (occurrence: None)
  Receive Date: 20060406
  Receipt Date: 20060323
  Transmission Date: 20061013
  Serious: Yes (Other)
  Sender: FDA-Public Use
  Company Number: GB-GLAXOSMITHKLINE-B0417242A

PATIENT
  Sex: Female

DRUGS (1)
  1. ZYBAN [Suspect]
     Indication: SMOKING CESSATION THERAPY
     Route: 048
     Dates: start: 20041001

REACTIONS (7)
  - DEPRESSION [None]
  - FEELING ABNORMAL [None]
  - INFLUENZA LIKE ILLNESS [None]
  - JOINT SWELLING [None]
  - RASH [None]
  - RASH PRURITIC [None]
  - SUICIDAL IDEATION [None]
